FAERS Safety Report 5809614-5 (Version None)
Quarter: 2008Q3

REPORT INFORMATION
  Report Type: 
  Country: None (occurrence: None)
  Receive Date: 20080715
  Receipt Date: 20080708
  Transmission Date: 20090109
  Serious: Yes (Other)
  Sender: FDA-Public Use
  Company Number: US-JNJFOC-20080601617

PATIENT
  Sex: Female
  Weight: 54.43 kg

DRUGS (8)
  1. LEVAQUIN [Suspect]
     Indication: SINUSITIS
     Route: 048
  2. PREDNISONE [Interacting]
     Route: 048
  3. PREDNISONE [Interacting]
     Route: 048
  4. PREDNISONE [Interacting]
     Indication: ASTHMA
     Route: 048
  5. PREDNISONE [Interacting]
     Indication: SINUSITIS
     Route: 048
  6. AMBIEN [Interacting]
     Route: 048
  7. AMBIEN [Interacting]
     Indication: INSOMNIA
     Route: 048
  8. LYRICA [Concomitant]

REACTIONS (7)
  - DIZZINESS [None]
  - DRUG INTERACTION [None]
  - HALLUCINATION [None]
  - INSOMNIA [None]
  - NAUSEA [None]
  - NERVOUSNESS [None]
  - PSYCHOMOTOR HYPERACTIVITY [None]
